FAERS Safety Report 21798567 (Version 1)
Quarter: 2022Q4

REPORT INFORMATION
  Report Type: Spontaneous
  Country: FR (occurrence: FR)
  Receive Date: 20221230
  Receipt Date: 20221230
  Transmission Date: 20230112
  Serious: Yes (Other)
  Sender: FDA-Public Use
  Company Number: None

PATIENT
  Age: 69 Year
  Sex: Male

DRUGS (3)
  1. OXALIPLATIN [Suspect]
     Active Substance: OXALIPLATIN
     Indication: Oesophageal adenocarcinoma
     Dosage: 165 MG, Q15D
     Route: 040
     Dates: start: 20221011, end: 20221122
  2. LEVOLEUCOVORIN CALCIUM [Suspect]
     Active Substance: LEVOLEUCOVORIN CALCIUM
     Indication: Vitamin supplementation
     Dosage: 390 MG, Q15D
     Route: 040
     Dates: start: 20221011
  3. FLUOROURACIL [Suspect]
     Active Substance: FLUOROURACIL
     Indication: Oesophageal adenocarcinoma
     Dosage: 4500 MG, Q15D
     Route: 040
     Dates: start: 20221011

REACTIONS (1)
  - Papilloedema [Not Recovered/Not Resolved]

NARRATIVE: CASE EVENT DATE: 20221011
